FAERS Safety Report 24223500 (Version 1)
Quarter: 2024Q3

REPORT INFORMATION
  Report Type: Report from Study
  Country: US (occurrence: US)
  Receive Date: 20240819
  Receipt Date: 20240819
  Transmission Date: 20241016
  Serious: Yes (Hospitalization)
  Sender: OTSUKA
  Company Number: US-OTSUKA-2024_019802

PATIENT
  Sex: Male
  Weight: 83.46 kg

DRUGS (1)
  1. CEDAZURIDINE\DECITABINE [Suspect]
     Active Substance: CEDAZURIDINE\DECITABINE
     Indication: Myelodysplastic syndrome
     Dosage: 1 DF (35 MG OF DECITABINE AND 100 MG OF CEDAZURIDINE), QD FOR 5 DAYS EVERY 28 DAYS
     Route: 048

REACTIONS (4)
  - Full blood count abnormal [Unknown]
  - Nasopharyngitis [Recovering/Resolving]
  - Gastroenteritis viral [Recovering/Resolving]
  - Vomiting [Recovering/Resolving]
